FAERS Safety Report 10264385 (Version 1)
Quarter: 2014Q2

REPORT INFORMATION
  Report Type: Spontaneous
  Country: US (occurrence: None)
  Receive Date: 20140624
  Receipt Date: 20140624
  Transmission Date: 20141212
  Serious: No
  Sender: FDA-Public Use
  Company Number: None

PATIENT
  Age: 72 Year
  Sex: Female
  Weight: 72.58 kg

DRUGS (11)
  1. IBANDRONATE SODIUM [Suspect]
     Indication: OSTEOPOROSIS
     Route: 048
     Dates: start: 20140415, end: 20140516
  2. FENOFIBRIC ACID [Concomitant]
  3. QUINAPRIL [Concomitant]
  4. ZOLOFT [Concomitant]
  5. PRAVASTATIN [Concomitant]
  6. JANUVIA [Concomitant]
  7. CARVEDILOL [Concomitant]
  8. POLY-IRON [Concomitant]
  9. PRENATAL VITAMINS [Concomitant]
  10. FISH OIL [Concomitant]
  11. BENADRYL [Concomitant]

REACTIONS (23)
  - Influenza like illness [None]
  - Bronchitis [None]
  - Muscle spasms [None]
  - Back pain [None]
  - Abdominal pain [None]
  - Nausea [None]
  - Urinary tract infection [None]
  - Upper respiratory tract infection [None]
  - Musculoskeletal pain [None]
  - Jaw disorder [None]
  - Bruxism [None]
  - Insomnia [None]
  - Arthralgia [None]
  - Myalgia [None]
  - Muscle spasms [None]
  - Depression [None]
  - Pruritus [None]
  - Vision blurred [None]
  - Erythema of eyelid [None]
  - Eyelid oedema [None]
  - Hypoaesthesia [None]
  - Dysgraphia [None]
  - Asthenia [None]
